FAERS Safety Report 23687762 (Version 1)
Quarter: 2024Q1

REPORT INFORMATION
  Report Type: Spontaneous
  Country: FR (occurrence: FR)
  Receive Date: 20240329
  Receipt Date: 20240329
  Transmission Date: 20240410
  Serious: Yes (Hospitalization, Other)
  Sender: FDA-Public Use
  Company Number: None

PATIENT
  Age: 74 Year
  Sex: Female

DRUGS (7)
  1. PACLITAXEL [Suspect]
     Active Substance: PACLITAXEL
     Indication: Ovarian cancer
     Dosage: 1 DF, WEEKLY
     Route: 042
     Dates: start: 20160413, end: 201706
  2. CARBOPLATIN [Suspect]
     Active Substance: CARBOPLATIN
     Indication: Ovarian cancer
     Dosage: 1 DF, CYCLIC
     Route: 042
     Dates: start: 201706, end: 201710
  3. DOXORUBICIN HYDROCHLORIDE [Suspect]
     Active Substance: DOXORUBICIN HYDROCHLORIDE
     Indication: Ovarian cancer
     Dosage: 60 MG, MONTHLY
     Route: 042
     Dates: start: 201801, end: 20180703
  4. CYCLOPHOSPHAMIDE [Suspect]
     Active Substance: CYCLOPHOSPHAMIDE
     Indication: Ovarian cancer
     Dosage: 50 MG, 1X/DAY
     Route: 048
     Dates: start: 20171122, end: 201801
  5. MELPHALAN [Suspect]
     Active Substance: MELPHALAN
     Indication: Ovarian cancer
     Dosage: 32 MG, MONTHLY (8MG/DAY/ 4 DAYS PER MONTH)
     Route: 048
     Dates: start: 201906, end: 202207
  6. GEMCITABINE [Concomitant]
     Active Substance: GEMCITABINE
     Indication: Ovarian cancer
     Dosage: 1 DF, CYCLIC
     Route: 042
     Dates: start: 201706, end: 201710
  7. AVASTIN [Concomitant]
     Active Substance: BEVACIZUMAB
     Indication: Ovarian cancer
     Dosage: UNK
     Route: 042
     Dates: start: 201706, end: 201711

REACTIONS (2)
  - Second primary malignancy [Not Recovered/Not Resolved]
  - Acute myeloid leukaemia [Not Recovered/Not Resolved]

NARRATIVE: CASE EVENT DATE: 20231101
